FAERS Safety Report 17086707 (Version 2)
Quarter: 2019Q4

REPORT INFORMATION
  Report Type: Spontaneous
  Country: DE (occurrence: DE)
  Receive Date: 20191128
  Receipt Date: 20191219
  Transmission Date: 20200122
  Serious: Yes (Other)
  Sender: FDA-Public Use
  Company Number: DE-TEVA-2019-DE-1140885

PATIENT
  Age: 26 Year
  Sex: Female
  Weight: 66 kg

DRUGS (5)
  1. COPAXONE [Suspect]
     Active Substance: GLATIRAMER ACETATE
     Indication: MULTIPLE SCLEROSIS
     Dates: start: 20191007, end: 20191025
  2. TIMOLOL AT [Concomitant]
  3. PREDNISON [Concomitant]
     Active Substance: PREDNISONE
     Route: 042
     Dates: start: 20190816, end: 20190821
  4. PREDNISON [Concomitant]
     Active Substance: PREDNISONE
     Route: 042
     Dates: start: 20190606, end: 20190611
  5. CLAVELLA [Concomitant]

REACTIONS (2)
  - Transaminases increased [Recovering/Resolving]
  - Hepatic necrosis [Recovering/Resolving]

NARRATIVE: CASE EVENT DATE: 20191025
